FAERS Safety Report 25146701 (Version 1)
Quarter: 2025Q2

REPORT INFORMATION
  Report Type: Report from Study
  Country: US (occurrence: US)
  Receive Date: 20250401
  Receipt Date: 20250401
  Transmission Date: 20250716
  Serious: No
  Sender: JOHNSON AND JOHNSON
  Company Number: US-JNJFOC-20250329447

PATIENT

DRUGS (1)
  1. GUSELKUMAB [Suspect]
     Active Substance: GUSELKUMAB
     Indication: Psoriasis
     Dosage: AT WEEK 0, WEEK 4 THEN EVERY 8 WEEKS
     Route: 065

REACTIONS (3)
  - Treatment noncompliance [Unknown]
  - Wrong technique in product usage process [Unknown]
  - Device deployment issue [Unknown]
